FAERS Safety Report 6400865-8 (Version None)
Quarter: 2009Q4

REPORT INFORMATION
  Report Type: 
  Country: None (occurrence: None)
  Receive Date: 20091009
  Receipt Date: 20090309
  Transmission Date: 20100525
  Serious: Yes (Life-Threatening, Hospitalization)
  Sender: FDA-Public Use
  Company Number: 212169

PATIENT
  Age: 17 Year
  Sex: Male
  Weight: 51 kg

DRUGS (1)
  1. METHOTREXATE [Suspect]
     Indication: CHEMOTHERAPY
     Dosage: 5 G/M2, ONCE
     Dates: start: 20090225, end: 20090225

REACTIONS (1)
  - CEREBROVASCULAR ACCIDENT [None]
